FAERS Safety Report 9967513 (Version 1)
Quarter: 2014Q1

REPORT INFORMATION
  Report Type: Report from Study
  Country: US (occurrence: US)
  Receive Date: 20140305
  Receipt Date: 20140305
  Transmission Date: 20141002
  Serious: No
  Sender: FDA-Public Use
  Company Number: US-ABBVIE-13P-163-1138505-00

PATIENT
  Age: 20 Year
  Sex: Female

DRUGS (5)
  1. HUMIRA [Suspect]
     Indication: RHEUMATOID ARTHRITIS
     Dosage: INITIAL DOSE
     Dates: start: 20130820
  2. METHYLPREDNISOLONE [Concomitant]
     Indication: RHEUMATOID ARTHRITIS
  3. LAMICTAL [Concomitant]
     Indication: MOOD ALTERED
  4. CONCERTA [Concomitant]
     Indication: ATTENTION DEFICIT/HYPERACTIVITY DISORDER
  5. SYMBICORT [Concomitant]
     Indication: ASTHMA
     Dosage: DAILY
     Route: 055

REACTIONS (3)
  - Nasopharyngitis [Not Recovered/Not Resolved]
  - Abdominal pain lower [Unknown]
  - Sinusitis [Not Recovered/Not Resolved]
